FAERS Safety Report 18485008 (Version 1)
Quarter: 2020Q4

REPORT INFORMATION
  Report Type: Spontaneous
  Country: US (occurrence: US)
  Receive Date: 20201109
  Receipt Date: 20201109
  Transmission Date: 20210114
  Serious: Yes (Hospitalization)
  Sender: FDA-Public Use
  Company Number: None

PATIENT
  Age: 66 Year
  Sex: Male
  Weight: 111.1 kg

DRUGS (2)
  1. CARBOPLATIN. [Suspect]
     Active Substance: CARBOPLATIN
     Dates: end: 20201021
  2. TAXOL [Suspect]
     Active Substance: PACLITAXEL
     Dates: end: 20201021

REACTIONS (5)
  - Troponin I increased [None]
  - Pleural effusion [None]
  - Ejection fraction decreased [None]
  - Myocardial infarction [None]
  - Packed red blood cell transfusion [None]

NARRATIVE: CASE EVENT DATE: 20201025
